FAERS Safety Report 17727600 (Version 7)
Quarter: 2020Q3

REPORT INFORMATION
  Report Type: Report from Study
  Country: IN (occurrence: IN)
  Receive Date: 20200430
  Receipt Date: 20200721
  Transmission Date: 20201102
  Serious: Yes (Other)
  Sender: FDA-Public Use
  Company Number: NVSC2020IN021874

PATIENT
  Age: 59 Year
  Sex: Male
  Weight: 66.7 kg

DRUGS (3)
  1. GALVUS MET [Suspect]
     Active Substance: METFORMIN HYDROCHLORIDE\VILDAGLIPTIN
     Indication: DIABETES MELLITUS
     Dosage: 1 DF, QD
     Route: 048
     Dates: start: 2011
  2. GALVUS MET [Suspect]
     Active Substance: METFORMIN HYDROCHLORIDE\VILDAGLIPTIN
     Dosage: 1 DF, BID, (1?0?1)
     Route: 048
  3. GALVUS MET [Suspect]
     Active Substance: METFORMIN HYDROCHLORIDE\VILDAGLIPTIN
     Dosage: 1 DF,QD
     Route: 048

REACTIONS (14)
  - Syncope [Unknown]
  - Sleep apnoea syndrome [Unknown]
  - Hypotension [Unknown]
  - Sleep deficit [Unknown]
  - Cardiac disorder [Unknown]
  - Lethargy [Unknown]
  - Blood pressure diastolic decreased [Unknown]
  - Dyslipidaemia [Unknown]
  - Hyperhidrosis [Unknown]
  - Aortic dilatation [Unknown]
  - Hyperglycaemia [Unknown]
  - Weight increased [Unknown]
  - Weight decreased [Unknown]
  - Fatigue [Unknown]

NARRATIVE: CASE EVENT DATE: 2017
